FAERS Safety Report 6646574-1 (Version None)
Quarter: 2010Q1

REPORT INFORMATION
  Report Type: 
  Country: None (occurrence: None)
  Receive Date: 20100317
  Receipt Date: 20100302
  Transmission Date: 20100710
  Serious: Yes (Hospitalization)
  Sender: FDA-Public Use
  Company Number: 008031

PATIENT
  Sex: Female

DRUGS (3)
  1. CIMZIA [Suspect]
     Indication: CROHN'S DISEASE
     Dosage: (SUBCUTANEOUS)
     Route: 058
     Dates: start: 20081201
  2. DONNATAL [Concomitant]
  3. PREDNISONE TAB [Concomitant]

REACTIONS (3)
  - CARDIOMYOPATHY [None]
  - CHEST PAIN [None]
  - EJECTION FRACTION DECREASED [None]
